FAERS Safety Report 17387573 (Version 2)
Quarter: 2020Q2

REPORT INFORMATION
  Report Type: Spontaneous
  Country: US (occurrence: US)
  Receive Date: 20200206
  Receipt Date: 20200501
  Transmission Date: 20200713
  Serious: No
  Sender: FDA-Public Use
  Company Number: US-RADIUS HEALTH INC.-2019US003410

PATIENT
  Age: 71 Year
  Sex: Female

DRUGS (1)
  1. TYMLOS [Suspect]
     Active Substance: ABALOPARATIDE
     Indication: OSTEOPOROSIS POSTMENOPAUSAL
     Dosage: 80 MCG, QD
     Route: 058
     Dates: start: 201909

REACTIONS (12)
  - Abdominal discomfort [Unknown]
  - Immune system disorder [Unknown]
  - Nasopharyngitis [Unknown]
  - Wrong technique in product usage process [Recovered/Resolved]
  - Heart rate increased [Recovering/Resolving]
  - Dehydration [Unknown]
  - Agitation [Unknown]
  - Malaise [Unknown]
  - Dyspepsia [Recovering/Resolving]
  - Fatigue [Recovering/Resolving]
  - Dizziness [Unknown]
  - Abdominal pain upper [Recovering/Resolving]

NARRATIVE: CASE EVENT DATE: 20190917
